FAERS Safety Report 14201858 (Version 1)
Quarter: 2017Q4

REPORT INFORMATION
  Report Type: Spontaneous
  Country: US (occurrence: US)
  Receive Date: 20171117
  Receipt Date: 20171117
  Transmission Date: 20180321
  Serious: Yes (Other)
  Sender: FDA-Public Use
  Company Number: US-FRESENIUS KABI-FK201709960

PATIENT
  Age: 60 Year
  Sex: Male

DRUGS (1)
  1. CISPLATIN (MANUFACTURER UNKNOWN) [Suspect]
     Active Substance: CISPLATIN
     Indication: THYROID NEOPLASM
     Route: 042

REACTIONS (6)
  - Skin exfoliation [Unknown]
  - Erythema [Unknown]
  - Oesophagitis [Unknown]
  - Pharyngeal inflammation [Unknown]
  - Nausea [Unknown]
  - Tinnitus [Unknown]
